FAERS Safety Report 16843576 (Version 1)
Quarter: 2019Q3

REPORT INFORMATION
  Report Type: Report from Study
  Country: FR (occurrence: FR)
  Receive Date: 20190924
  Receipt Date: 20190924
  Transmission Date: 20191005
  Serious: Yes (Hospitalization, Other)
  Sender: FDA-Public Use
  Company Number: FR-TAIHO ONCOLOGY  INC-JPTT171516

PATIENT
  Age: 64 Year
  Sex: Male
  Weight: 74 kg

DRUGS (10)
  1. METFORMINE [Concomitant]
     Active Substance: METFORMIN HYDROCHLORIDE
     Indication: TYPE 2 DIABETES MELLITUS
     Dosage: 1 G, BID
     Route: 048
  2. LONSURF [Suspect]
     Active Substance: TIPIRACIL HYDROCHLORIDE\TRIFLURIDINE
     Indication: COLORECTAL CANCER METASTATIC
     Dosage: 65 MG BID (35 MG/M2) ON DAYS 1-5 OF EACH 14-DAY CYCLE
     Route: 048
     Dates: start: 20170928, end: 20171016
  3. AMAREL [Concomitant]
     Active Substance: GLIMEPIRIDE
     Dosage: 6 MG, BID
     Route: 048
     Dates: start: 20171218
  4. SOLU-MEDROL [Concomitant]
     Active Substance: METHYLPREDNISOLONE SODIUM SUCCINATE
     Indication: PROPHYLAXIS
  5. AMAREL [Concomitant]
     Active Substance: GLIMEPIRIDE
     Indication: TYPE 2 DIABETES MELLITUS
     Dosage: 6 MG, QD
     Route: 048
     Dates: end: 20171218
  6. ZOPHREN [Concomitant]
     Active Substance: ONDANSETRON
     Indication: PROPHYLAXIS
  7. OXALIPLATIN. [Suspect]
     Active Substance: OXALIPLATIN
     Indication: COLORECTAL CANCER METASTATIC
     Dosage: 161 MG (85 MG/M2), ON DAY 1 OF EACH 14-DAY CYCLE
     Route: 042
     Dates: start: 20170928, end: 20171123
  8. LONSURF [Suspect]
     Active Substance: TIPIRACIL HYDROCHLORIDE\TRIFLURIDINE
     Dosage: 65 MG BID (35 MG/M2) ON DAYS 1-5 OF EACH 14-DAY CYCLE
     Route: 048
     Dates: start: 20171109, end: 20171127
  9. SOLU-MEDROL [Concomitant]
     Active Substance: METHYLPREDNISOLONE SODIUM SUCCINATE
     Indication: CHEMOTHERAPY
     Dosage: 120 MG, UNK
     Route: 051
     Dates: start: 20170928
  10. ZOPHREN [Concomitant]
     Active Substance: ONDANSETRON
     Indication: CHEMOTHERAPY
     Dosage: 8 MG UNK
     Route: 051
     Dates: start: 20170928

REACTIONS (6)
  - Thrombocytopenia [Recovered/Resolved]
  - Oesophageal varices haemorrhage [Recovered/Resolved]
  - Portal hypertension [Not Recovered/Not Resolved]
  - Blood loss anaemia [Recovered/Resolved]
  - Malignant neoplasm progression [Recovered/Resolved]
  - Gastric ulcer haemorrhage [Recovering/Resolving]

NARRATIVE: CASE EVENT DATE: 20171206
